FAERS Safety Report 8562096-5 (Version None)
Quarter: 2012Q3

REPORT INFORMATION
  Report Type: 
  Country: None (occurrence: None)
  Receive Date: 20120802
  Receipt Date: 20120705
  Transmission Date: 20120928
  Serious: No
  Sender: FDA-Public Use
  Company Number: US-AMGEN-USASP2012041645

PATIENT
  Sex: Male

DRUGS (1)
  1. ENBREL [Suspect]
     Indication: RHEUMATOID ARTHRITIS
     Dosage: 50 MG, QWK
     Dates: start: 20120625

REACTIONS (6)
  - DRUG EFFECT DECREASED [None]
  - FLUSHING [None]
  - FEELING HOT [None]
  - NAUSEA [None]
  - NIGHT SWEATS [None]
  - INJECTION SITE PAIN [None]
